FAERS Safety Report 9285180 (Version 1)
Quarter: 2013Q2

REPORT INFORMATION
  Report Type: Spontaneous
  Country: US (occurrence: US)
  Receive Date: 20130513
  Receipt Date: 20130513
  Transmission Date: 20140414
  Serious: Yes (Other)
  Sender: FDA-Public Use
  Company Number: US-SANOFI-AVENTIS-2013SA047076

PATIENT
  Sex: Female

DRUGS (17)
  1. LANTUS [Suspect]
  2. LASIX [Suspect]
  3. PLAQUENIL [Suspect]
  4. CORTICOSTEROID NOS [Concomitant]
  5. DRUG USED IN DIABETES [Concomitant]
  6. INSULIN [Concomitant]
  7. LOPRESOR [Concomitant]
  8. LISINOPRIL [Concomitant]
  9. METHOTREXATE [Concomitant]
  10. FLEXERIL [Concomitant]
  11. PERCOCET [Concomitant]
  12. NOVOLOG [Concomitant]
  13. VITAMIN D [Concomitant]
  14. ZESTRIL [Concomitant]
  15. AMITRIPTYLINE [Concomitant]
  16. PREDNISONE [Concomitant]
  17. POTASSIUM [Concomitant]

REACTIONS (4)
  - Cerebrovascular accident [Unknown]
  - Arthritis [Unknown]
  - Blood disorder [Unknown]
  - Weight increased [Unknown]
